FAERS Safety Report 8538641-2 (Version None)
Quarter: 2012Q3

REPORT INFORMATION
  Report Type: 
  Country: None (occurrence: None)
  Receive Date: 20120718
  Receipt Date: 20120718
  Transmission Date: 20120928
  Serious: No
  Sender: FDA-Public Use
  Company Number: None

PATIENT

DRUGS (2)
  1. PRADAXA [Suspect]
     Indication: MITRAL VALVE REPAIR
     Dosage: 150 MG MORNING EVENING ; 85 MG. MORNING EVENING
     Dates: start: 20120114, end: 20120519
  2. PRADAXA [Suspect]
     Indication: MITRAL VALVE REPAIR
     Dosage: 150 MG MORNING EVENING ; 85 MG. MORNING EVENING
     Dates: start: 20111221, end: 20120113

REACTIONS (3)
  - SYNCOPE [None]
  - ASTHENIA [None]
  - HEADACHE [None]
